FAERS Safety Report 20950357 (Version 1)
Quarter: 2022Q2

REPORT INFORMATION
  Report Type: Report from Study
  Country: ES (occurrence: ES)
  Receive Date: 20220613
  Receipt Date: 20220613
  Transmission Date: 20220721
  Serious: Yes (Other)
  Sender: FDA-Public Use
  Company Number: ES-ABBVIE-22K-144-4375838-00

PATIENT
  Sex: Male

DRUGS (2)
  1. CARBIDOPA\LEVODOPA [Suspect]
     Active Substance: CARBIDOPA\LEVODOPA
     Indication: Parkinson^s disease
     Dosage: MORNING DOSE 13 ML., CONTINUES DOSE 2.5 ML/H AND EXTRA DOSE 2.5 ML./16 HOURS A DAY
     Route: 050
     Dates: start: 20190718
  2. CARBIDOPA\LEVODOPA [Suspect]
     Active Substance: CARBIDOPA\LEVODOPA
     Route: 050

REACTIONS (9)
  - Gait disturbance [Not Recovered/Not Resolved]
  - Medical device site haematoma [Not Recovered/Not Resolved]
  - Device issue [Not Recovered/Not Resolved]
  - Parkinson^s disease [Unknown]
  - Stoma site infection [Recovering/Resolving]
  - Stoma site odour [Recovering/Resolving]
  - Stoma site discharge [Unknown]
  - Stoma site irritation [Not Recovered/Not Resolved]
  - Stoma site discharge [Unknown]

NARRATIVE: CASE EVENT DATE: 20220101
